FAERS Safety Report 19660099 (Version 1)
Quarter: 2021Q3

REPORT INFORMATION
  Report Type: Spontaneous
  Country: US (occurrence: US)
  Receive Date: 20210804
  Receipt Date: 20210804
  Transmission Date: 20211014
  Serious: No
  Sender: FDA-Public Use
  Company Number: None

PATIENT
  Age: 50 Year
  Sex: Female
  Weight: 44.1 kg

DRUGS (1)
  1. SUTAB [Suspect]
     Active Substance: MAGNESIUM SULFATE\POTASSIUM CHLORIDE\SODIUM SULFATE
     Indication: BOWEL PREPARATION
     Dosage: ?          QUANTITY:24 TABLET(S);?
     Route: 048
     Dates: start: 20210728, end: 20210729

REACTIONS (9)
  - Vomiting [None]
  - Asthenia [None]
  - Headache [None]
  - Nausea [None]
  - Heart rate increased [None]
  - Tinnitus [None]
  - Hot flush [None]
  - Dizziness [None]
  - Disorientation [None]

NARRATIVE: CASE EVENT DATE: 20210728
